FAERS Safety Report 6725228-7 (Version None)
Quarter: 2010Q2

REPORT INFORMATION
  Report Type: 
  Country: None (occurrence: None)
  Receive Date: 20100514
  Receipt Date: 20100507
  Transmission Date: 20101027
  Serious: Yes (Hospitalization, Disabling, Other)
  Sender: FDA-Public Use
  Company Number: US-TYCO HEALTHCARE/MALLINCKRODT-T200801494

PATIENT
  Sex: Female
  Weight: 82.993 kg

DRUGS (18)
  1. OPTIMARK [Suspect]
     Indication: NUCLEAR MAGNETIC RESONANCE IMAGING
     Dosage: UNK
     Dates: start: 20040216, end: 20040216
  2. OPTIMARK [Suspect]
     Indication: NUCLEAR MAGNETIC RESONANCE IMAGING BRAIN
     Dosage: UNK
     Dates: start: 20040804, end: 20040804
  3. OPTIMARK [Suspect]
     Dosage: 15 ML, SINGLE
     Dates: start: 20041028, end: 20041028
  4. MAGNEVIST [Suspect]
     Indication: NUCLEAR MAGNETIC RESONANCE IMAGING
     Dosage: UNK, SINGLE
     Dates: start: 20050224, end: 20050224
  5. MAGNEVIST [Suspect]
     Indication: NUCLEAR MAGNETIC RESONANCE IMAGING BRAIN
     Dates: start: 20050224, end: 20050224
  6. MAGNEVIST [Suspect]
     Dosage: UNK, SINGLE
     Dates: start: 20050908, end: 20050908
  7. MAGNEVIST [Suspect]
     Dates: start: 20050908, end: 20050908
  8. MAGNEVIST [Suspect]
     Dates: start: 20051110, end: 20051110
  9. MAGNEVIST [Suspect]
     Dates: start: 20060523, end: 20060523
  10. MAGNEVIST [Suspect]
     Dosage: 17 ML, SINGLE
     Dates: start: 20060923, end: 20060923
  11. GADOLINIUM [Suspect]
     Indication: FISTULOGRAM
     Dosage: 70 ML, SINGLE
     Dates: start: 20041013, end: 20041013
  12. AMITRIPTYLINE HYDROCHLORIDE [Concomitant]
     Indication: ANTIDEPRESSANT THERAPY
     Dosage: 25 MG, QD
  13. LANOXIN [Concomitant]
     Indication: PALPITATIONS
     Dosage: 0.125 MG, QOD
  14. NORVASC [Concomitant]
     Indication: HYPERTENSION
     Dosage: 5/500 TWICE DAILY
     Dates: start: 19970101
  15. PROGRAF [Concomitant]
     Indication: PROPHYLAXIS AGAINST TRANSPLANT REJECTION
     Dosage: 2 MG BID
     Dates: start: 19960101
  16. AZATHIOPRINE [Concomitant]
     Dosage: 50 MG, QD
  17. GLIPIZIDE [Concomitant]
     Dosage: 5 MG, QD
  18. LASIX [Concomitant]
     Dosage: UNK

REACTIONS (35)
  - ABASIA [None]
  - ACUTE CORONARY SYNDROME [None]
  - ACUTE MYOCARDIAL INFARCTION [None]
  - ALOPECIA [None]
  - ANAEMIA [None]
  - ARTERIOVENOUS FISTULA SITE COMPLICATION [None]
  - ATRIAL FIBRILLATION [None]
  - BASAL CELL CARCINOMA [None]
  - CARDIAC FAILURE CONGESTIVE [None]
  - CARDIOMEGALY [None]
  - CAROTID ARTERY STENOSIS [None]
  - CHEST PAIN [None]
  - COCCIDIOIDOMYCOSIS [None]
  - CONSTIPATION [None]
  - CORONARY ARTERY DISEASE [None]
  - DEHYDRATION [None]
  - DYSPNOEA [None]
  - FLUID OVERLOAD [None]
  - GASTROENTERITIS [None]
  - HEART VALVE INCOMPETENCE [None]
  - HYPERPHOSPHATAEMIA [None]
  - INCISIONAL HERNIA [None]
  - INFLUENZA [None]
  - LIVER FUNCTION TEST ABNORMAL [None]
  - MUSCLE ATROPHY [None]
  - MUSCULOSKELETAL DISORDER [None]
  - NEPHROGENIC SYSTEMIC FIBROSIS [None]
  - NEUROPATHY PERIPHERAL [None]
  - OFF LABEL USE [None]
  - PROCEDURAL HYPOTENSION [None]
  - SQUAMOUS CELL CARCINOMA [None]
  - UPPER RESPIRATORY TRACT INFECTION [None]
  - URINARY TRACT INFECTION [None]
  - VISUAL IMPAIRMENT [None]
  - VOMITING [None]
